FAERS Safety Report 7471044-0 (Version None)
Quarter: 2011Q2

REPORT INFORMATION
  Report Type: 
  Country: None (occurrence: None)
  Receive Date: 20110510
  Receipt Date: 20110505
  Transmission Date: 20111010
  Serious: No
  Sender: FDA-Public Use
  Company Number: US-PFIZER INC-2011097118

PATIENT
  Age: 58 Year
  Sex: Male

DRUGS (2)
  1. AMBIEN [Suspect]
     Dosage: UNK
     Dates: start: 20110401, end: 20110401
  2. XANAX [Suspect]
     Dosage: UNK

REACTIONS (1)
  - INSOMNIA [None]
